FAERS Safety Report 13065732 (Version 1)
Quarter: 2016Q4

REPORT INFORMATION
  Report Type: Other
  Country: GB (occurrence: GB)
  Receive Date: 20161227
  Receipt Date: 20161227
  Transmission Date: 20170207
  Serious: Yes (Hospitalization, Other)
  Sender: FDA-Public Use
  Company Number: GB-ASTELLAS-2016US050120

PATIENT
  Age: 79 Year
  Sex: Female

DRUGS (2)
  1. TACROLIMUS. [Suspect]
     Active Substance: TACROLIMUS
     Indication: RENAL TRANSPLANT
     Dosage: UNK UNK, UNKNOWN FREQ.
     Route: 065
  2. CLARITHROMYCIN. [Interacting]
     Active Substance: CLARITHROMYCIN
     Indication: ABDOMINAL INFECTION
     Dosage: UNK UNK, UNKNOWN FREQ.
     Route: 048
     Dates: start: 20161122, end: 20161129

REACTIONS (5)
  - Labelled drug-drug interaction medication error [Unknown]
  - Toxicity to various agents [Unknown]
  - Acute kidney injury [Recovered/Resolved]
  - Malaise [Unknown]
  - Immunosuppressant drug level increased [Recovering/Resolving]
